FAERS Safety Report 23708308 (Version 2)
Quarter: 2025Q2

REPORT INFORMATION
  Report Type: Spontaneous
  Country: PL (occurrence: PL)
  Receive Date: 20240404
  Receipt Date: 20250515
  Transmission Date: 20250716
  Serious: Yes (Other)
  Sender: AUROBINDO
  Company Number: PL-EMA-DD-20240320-7482655-074814

PATIENT
  Age: 58 Year
  Sex: Male

DRUGS (9)
  1. PEMETREXED [Suspect]
     Active Substance: PEMETREXED
     Indication: Lung carcinoma cell type unspecified stage IV
     Route: 065
     Dates: start: 201612, end: 201704
  2. CISPLATIN [Suspect]
     Active Substance: CISPLATIN
     Indication: Lung carcinoma cell type unspecified stage IV
     Route: 065
     Dates: start: 201612, end: 201704
  3. DOCETAXEL [Suspect]
     Active Substance: DOCETAXEL
     Indication: Metastases to bone
     Route: 065
     Dates: start: 201812, end: 201812
  4. DOCETAXEL [Suspect]
     Active Substance: DOCETAXEL
     Indication: Lung adenocarcinoma stage IV
     Route: 065
     Dates: start: 202001, end: 202001
  5. DOCETAXEL [Suspect]
     Active Substance: DOCETAXEL
     Indication: Chemotherapy
  6. GEMCITABINE [Suspect]
     Active Substance: GEMCITABINE
     Indication: Lung carcinoma cell type unspecified stage IV
     Route: 065
     Dates: start: 202002, end: 202003
  7. NINTEDANIB [Suspect]
     Active Substance: NINTEDANIB
     Indication: Lung adenocarcinoma stage IV
     Route: 065
     Dates: start: 201812, end: 201812
  8. NINTEDANIB [Suspect]
     Active Substance: NINTEDANIB
     Indication: Metastases to bone
     Route: 065
     Dates: start: 202001, end: 202001
  9. NINTEDANIB [Suspect]
     Active Substance: NINTEDANIB
     Indication: Chemotherapy

REACTIONS (13)
  - Decreased appetite [Unknown]
  - Thrombocytopenia [Unknown]
  - Malignant neoplasm progression [Unknown]
  - Nausea [Unknown]
  - Pulmonary embolism [Unknown]
  - Upper respiratory tract infection [Unknown]
  - Nephropathy toxic [Unknown]
  - Asthenia [Unknown]
  - Malaise [Unknown]
  - Neutropenia [Unknown]
  - Abdominal pain [Unknown]
  - Transaminases increased [Unknown]
  - Blood pressure increased [Recovered/Resolved]
